FAERS Safety Report 9312868 (Version 2)
Quarter: 2013Q2

REPORT INFORMATION
  Report Type: Report from Study
  Country: US (occurrence: US)
  Receive Date: 20130528
  Receipt Date: 20130612
  Transmission Date: 20140414
  Serious: No
  Sender: FDA-Public Use
  Company Number: US-US-EMD SERONO, INC.-7213235

PATIENT
  Age: 57 Year
  Sex: Female

DRUGS (3)
  1. REBIF [Suspect]
     Indication: MULTIPLE SCLEROSIS
     Route: 058
     Dates: start: 20111013
  2. ASPIRIN                            /00002701/ [Concomitant]
     Indication: PREMEDICATION
  3. BOTOX [Concomitant]
     Indication: MIGRAINE

REACTIONS (2)
  - Hypothyroidism [Recovered/Resolved]
  - Injection site erythema [Recovered/Resolved]
